FAERS Safety Report 25623070 (Version 1)
Quarter: 2025Q3

REPORT INFORMATION
  Report Type: Spontaneous
  Country: BR (occurrence: BR)
  Receive Date: 20250730
  Receipt Date: 20250730
  Transmission Date: 20251020
  Serious: Yes (Other)
  Sender: BRISTOL-MYERS SQUIBB COMPANY
  Company Number: BR-BRISTOL-MYERS SQUIBB COMPANY-2025-105668

PATIENT
  Age: 60 Year
  Sex: Female

DRUGS (2)
  1. PACLITAXEL [Suspect]
     Active Substance: PACLITAXEL
     Indication: Adenocarcinoma pancreas
     Dosage: D1, D8 EVERY 21 DAYS/INJECTION, POWDER, LYOPHILIZED, FOR SUSPENSION
  2. GEMCITABINE [Suspect]
     Active Substance: GEMCITABINE
     Indication: Adenocarcinoma pancreas
     Dosage: D1, D8 EVERY 21 DAYS

REACTIONS (3)
  - Pancreatic disorder [Unknown]
  - Hepatic mass [Unknown]
  - Neoplasm [Unknown]
